FAERS Safety Report 10222818 (Version 1)
Quarter: 2014Q2

REPORT INFORMATION
  Report Type: Spontaneous
  Country: JP (occurrence: JP)
  Receive Date: 20140606
  Receipt Date: 20140606
  Transmission Date: 20141212
  Serious: Yes (Hospitalization)
  Sender: FDA-Public Use
  Company Number: JP-ASTRAZENECA-2014SE38723

PATIENT
  Age: 80 Year
  Sex: Female

DRUGS (5)
  1. NEXIUM [Suspect]
     Indication: CHRONIC GASTRITIS
     Route: 048
     Dates: start: 20140123, end: 20140418
  2. JUVELA N [Concomitant]
     Dosage: DOSE UNKNOWN
     Route: 048
  3. PROCYLIN [Concomitant]
     Dosage: DOSE UNKNOWN
     Route: 048
  4. LOCHOL [Concomitant]
     Dosage: DOSE UNKNOWN
     Route: 065
  5. NU-LOTAN [Concomitant]
     Dosage: DOSE UNKNOWN
     Route: 065

REACTIONS (2)
  - Platelet count decreased [Not Recovered/Not Resolved]
  - Epistaxis [Unknown]
